FAERS Safety Report 18332226 (Version 1)
Quarter: 2020Q3

REPORT INFORMATION
  Report Type: Spontaneous
  Country: CN (occurrence: CN)
  Receive Date: 20200930
  Receipt Date: 20200930
  Transmission Date: 20201103
  Serious: Yes (Hospitalization, Other)
  Sender: FDA-Public Use
  Company Number: CN-PFIZER INC-2020375367

PATIENT
  Age: 58 Year
  Sex: Male
  Weight: 68 kg

DRUGS (7)
  1. CYTARABINE. [Suspect]
     Active Substance: CYTARABINE
     Indication: LUNG NEOPLASM MALIGNANT
     Dosage: 50 MG, 1X/DAY
     Route: 037
     Dates: start: 20200731, end: 20200731
  2. SAI ZHEN [Suspect]
     Active Substance: PEMETREXED DISODIUM
     Indication: LUNG NEOPLASM MALIGNANT
     Dosage: 10 MG, 1X/DAY
     Route: 037
     Dates: start: 20200807, end: 20200807
  3. METHOTREXATE. [Suspect]
     Active Substance: METHOTREXATE
     Indication: LUNG NEOPLASM MALIGNANT
     Dosage: 0.01 G, 1X/DAY
     Route: 037
     Dates: start: 20200804, end: 20200804
  4. METHOTREXATE. [Suspect]
     Active Substance: METHOTREXATE
     Indication: CHEMOTHERAPY
  5. CYTARABINE. [Suspect]
     Active Substance: CYTARABINE
     Indication: CHEMOTHERAPY
  6. SAI ZHEN [Suspect]
     Active Substance: PEMETREXED DISODIUM
     Indication: CHEMOTHERAPY
  7. SODIUM CHLORIDE. [Concomitant]
     Active Substance: SODIUM CHLORIDE
     Indication: VEHICLE SOLUTION USE
     Dosage: 0.47 ML, 1X/DAY
     Route: 037
     Dates: start: 20200731, end: 20200731

REACTIONS (1)
  - Myelosuppression [Recovering/Resolving]

NARRATIVE: CASE EVENT DATE: 20200808
